FAERS Safety Report 19894792 (Version 2)
Quarter: 2022Q4

REPORT INFORMATION
  Report Type: Spontaneous
  Country: US (occurrence: US)
  Receive Date: 20210929
  Receipt Date: 20221018
  Transmission Date: 20230112
  Serious: No
  Sender: FDA-Public Use
  Company Number: US-CELLTRION INC.-2021US008912

PATIENT

DRUGS (2)
  1. INFLECTRA [Suspect]
     Active Substance: INFLIXIMAB-DYYB
     Indication: Product used for unknown indication
     Dosage: UNK
     Route: 065
  2. INFLECTRA [Suspect]
     Active Substance: INFLIXIMAB-DYYB
     Dosage: 319 MILLIGRAM (FREQUENCY: EVERY 8 WEEKS QUANTITY: 4.100MG VIALS REFILLS: 7)

REACTIONS (4)
  - Unevaluable event [Unknown]
  - Product temperature excursion issue [Unknown]
  - Treatment delayed [Unknown]
  - Product storage error [Unknown]
